FAERS Safety Report 7668984-6 (Version None)
Quarter: 2011Q3

REPORT INFORMATION
  Report Type: 
  Country: None (occurrence: None)
  Receive Date: 20110808
  Receipt Date: 20110727
  Transmission Date: 20111222
  Serious: Yes (Hospitalization)
  Sender: FDA-Public Use
  Company Number: GB-GLAXOSMITHKLINE-B0737535A

PATIENT
  Sex: Female

DRUGS (20)
  1. RITUXIMAB [Suspect]
     Indication: CHRONIC LYMPHOCYTIC LEUKAEMIA
     Dosage: 700MG MONTHLY
     Route: 042
     Dates: start: 20080414
  2. UNKNOWN SUPPLEMENT [Concomitant]
     Dates: start: 20080726, end: 20081013
  3. BETAHISTINE [Concomitant]
     Dates: start: 20080723, end: 20080808
  4. CAVILON [Concomitant]
     Dates: start: 20080725, end: 20080915
  5. FORTISIP [Concomitant]
     Dates: start: 20080726, end: 20081013
  6. POTASSIUM CHLORIDE [Concomitant]
     Dates: start: 20080721, end: 20080812
  7. DIFFLAM [Concomitant]
     Dates: start: 20080724, end: 20080730
  8. CLARITHROMYCIN [Concomitant]
     Dates: start: 20080721, end: 20080728
  9. ACETAMINOPHEN [Concomitant]
     Dates: start: 20080719, end: 20080915
  10. ENOXAPARIN SODIUM [Concomitant]
     Dates: start: 20080721, end: 20080912
  11. ANUSOL CREAM [Concomitant]
     Dates: start: 20080725, end: 20080929
  12. CHLORHEXIDINE GLUCONATE [Concomitant]
     Dates: start: 20080720, end: 20080912
  13. PEPTAC [Concomitant]
     Dates: start: 20080719, end: 20080719
  14. METOCLOPRAMIDE [Concomitant]
     Dates: start: 20080722, end: 20080730
  15. MAGNESIUM [Concomitant]
     Dates: start: 20080726, end: 20080726
  16. METRONIDAZOLE [Concomitant]
     Dates: start: 20080723, end: 20080729
  17. CHLORAMBUCIL [Suspect]
     Indication: CHRONIC LYMPHOCYTIC LEUKAEMIA
     Dosage: 2MG PER DAY
     Route: 048
     Dates: start: 20080414, end: 20080815
  18. ONDANSETRON [Concomitant]
     Dates: start: 20080717, end: 20080719
  19. DICLOFENAC GEL [Concomitant]
     Dates: start: 20080719, end: 20080929
  20. CYCLIZINE [Concomitant]
     Dates: start: 20080719, end: 20080724

REACTIONS (2)
  - ENCEPHALITIS VIRAL [None]
  - FEBRILE NEUTROPENIA [None]
